FAERS Safety Report 7328238-4 (Version None)
Quarter: 2011Q1

REPORT INFORMATION
  Report Type: 
  Country: None (occurrence: None)
  Receive Date: 20110218
  Receipt Date: 20110204
  Transmission Date: 20110831
  Serious: Yes (Hospitalization)
  Sender: FDA-Public Use
  Company Number: 1000018779

PATIENT
  Age: 81 Year
  Sex: Male

DRUGS (8)
  1. MEMANTINE [Suspect]
     Indication: DEMENTIA ALZHEIMER'S TYPE
     Dosage: 10 MG (10 MG, 1 IN 1 D), ORAL
     Route: 048
  2. RISPERDAL [Suspect]
     Dosage: 0.5 MG (0.5 MG, 1 IN 1 D), ORAL
     Route: 048
  3. ATACAND [Suspect]
     Dosage: 16 MG (16 MG, 1 IN 1 D), ORAL
     Route: 048
  4. ALFUZOSINE (ALFUZOSIN HYDROCHLORIDEI) [Suspect]
     Dosage: 10 MG (10 MG, 1 IN 1 D)
  5. ZOPICLONE (ZOPICLONE) [Concomitant]
  6. FUROSEMIDE [Suspect]
     Dosage: 40 MG (40 MG, 1 IN 1 D), ORAL
     Route: 048
  7. LORAZEPAM [Concomitant]
  8. SERESTA (OXAZEPAM) [Concomitant]

REACTIONS (4)
  - EPILEPSY [None]
  - HYPOTENSION [None]
  - DEHYDRATION [None]
  - HYPOVOLAEMIC SHOCK [None]
